FAERS Safety Report 7883680-8 (Version None)
Quarter: 2011Q4

REPORT INFORMATION
  Report Type: 
  Country: None (occurrence: None)
  Receive Date: 20111102
  Receipt Date: 20111024
  Transmission Date: 20120403
  Serious: Yes (Hospitalization)
  Sender: FDA-Public Use
  Company Number: FR-PFIZER INC-2011265326

PATIENT
  Age: 79 Year
  Sex: Male

DRUGS (13)
  1. MINISINTROM [Interacting]
     Dosage: 1 MG, UNK
     Route: 048
     Dates: end: 20110909
  2. AMOXICILLIN TRIHYDRATE [Interacting]
     Indication: PANNICULITIS
     Dosage: 3 G, UNK
     Route: 042
     Dates: start: 20110904
  3. LASIX [Concomitant]
     Dosage: UNK
  4. ALDACTONE [Concomitant]
     Dosage: UNK
  5. CARVEDILOL [Concomitant]
     Dosage: UNK
  6. CRESTOR [Concomitant]
     Dosage: UNK
  7. AVODART [Concomitant]
     Dosage: UNK
  8. PANTOPRAZOLE [Suspect]
     Dosage: 40 MG, UNK
     Route: 048
     Dates: start: 20110904, end: 20110909
  9. MYCOSTER [Interacting]
     Dosage: UNK
     Route: 061
     Dates: start: 20110904, end: 20110909
  10. UMULINE [Concomitant]
     Dosage: UNK
  11. CARDEGIC [Concomitant]
     Dosage: UNK
  12. CORDARONE [Concomitant]
     Dosage: UNK
  13. ALFUZOSIN HCL [Concomitant]
     Dosage: UNK

REACTIONS (3)
  - DRUG INTERACTION [None]
  - EPISTAXIS [None]
  - INTERNATIONAL NORMALISED RATIO INCREASED [None]
